FAERS Safety Report 6589839-4 (Version None)
Quarter: 2010Q1

REPORT INFORMATION
  Report Type: 
  Country: None (occurrence: None)
  Receive Date: 20100219
  Receipt Date: 20100215
  Transmission Date: 20100710
  Serious: Yes (Other)
  Sender: FDA-Public Use
  Company Number: DE-WYE-G05570210

PATIENT
  Sex: Female

DRUGS (2)
  1. TREVILOR RETARD [Suspect]
     Route: 048
     Dates: start: 20080101, end: 20091001
  2. TREVILOR RETARD [Suspect]
     Dosage: 17.75 MG PER DAY OR 37.5 MG EVERY 2 DAYS
     Route: 048
     Dates: start: 20091001

REACTIONS (2)
  - FALL [None]
  - FRACTURE [None]
